FAERS Safety Report 6630185-8 (Version None)
Quarter: 2010Q1

REPORT INFORMATION
  Report Type: 
  Country: None (occurrence: None)
  Receive Date: 20100311
  Receipt Date: 20100301
  Transmission Date: 20100710
  Serious: Yes (Other)
  Sender: FDA-Public Use
  Company Number: B0638567A

PATIENT
  Sex: Male

DRUGS (6)
  1. NEOTIGASON [Suspect]
     Indication: ECZEMA
     Route: 048
     Dates: start: 20081001
  2. METOPROLOL [Concomitant]
     Indication: DRUG USE FOR UNKNOWN INDICATION
     Route: 065
  3. ALBYL E [Concomitant]
     Indication: DRUG USE FOR UNKNOWN INDICATION
     Route: 065
  4. SIMVASTATIN [Concomitant]
     Indication: DRUG USE FOR UNKNOWN INDICATION
     Route: 065
  5. OXYCODONE [Concomitant]
     Indication: DRUG USE FOR UNKNOWN INDICATION
     Route: 065
  6. TRAMADOL HCL [Concomitant]
     Indication: DRUG USE FOR UNKNOWN INDICATION
     Route: 065

REACTIONS (13)
  - BLEPHARITIS [None]
  - DRY MOUTH [None]
  - EPISTAXIS [None]
  - IMPAIRED DRIVING ABILITY [None]
  - IMPAIRED HEALING [None]
  - LACRIMATION INCREASED [None]
  - LIP DRY [None]
  - NAIL DISORDER [None]
  - NASAL DRYNESS [None]
  - NIGHT BLINDNESS [None]
  - ONYCHOCLASIS [None]
  - RHINORRHOEA [None]
  - STICKY SKIN [None]
